FAERS Safety Report 4364534-0 (Version None)
Quarter: 2004Q2

REPORT INFORMATION
  Report Type: 
  Country: None (occurrence: None)
  Receive Date: 20040521
  Receipt Date: 20040507
  Transmission Date: 20050107
  Serious: Yes (Hospitalization)
  Sender: FDA-Public Use
  Company Number: K200400704

PATIENT
  Age: 57 Year
  Sex: Male
  Weight: 85.7 kg

DRUGS (6)
  1. ALTACE [Suspect]
     Dosage: SEE IMAGE
     Route: 048
     Dates: start: 20040101, end: 20040201
  2. ALTACE [Suspect]
     Dosage: SEE IMAGE
     Route: 048
     Dates: start: 20040331, end: 20040427
  3. ALTACE [Suspect]
     Dosage: SEE IMAGE
     Route: 048
     Dates: start: 20040506, end: 20040506
  4. ASPIRIN [Concomitant]
  5. PLAVIX [Concomitant]
  6. ZOCOR [Concomitant]

REACTIONS (10)
  - ANGINA PECTORIS [None]
  - CHEST DISCOMFORT [None]
  - CHEST PAIN [None]
  - DYSPNOEA [None]
  - ELECTROCARDIOGRAM ST SEGMENT DEPRESSION [None]
  - FATIGUE [None]
  - FEELING ABNORMAL [None]
  - FEELING JITTERY [None]
  - LABILE BLOOD PRESSURE [None]
  - NAUSEA [None]
